FAERS Safety Report 23944713 (Version 1)
Quarter: 2024Q2

REPORT INFORMATION
  Report Type: Spontaneous
  Country: IL (occurrence: IL)
  Receive Date: 20240606
  Receipt Date: 20240606
  Transmission Date: 20240715
  Serious: Yes (Hospitalization, Other)
  Sender: FDA-Public Use
  Company Number: IL-BAXTER-2024BAX019060

PATIENT
  Age: 46 Year
  Sex: Female

DRUGS (3)
  1. AMINO ACIDS\DEXTROSE\ELECTROLYTES NOS\SOYBEAN OIL [Suspect]
     Active Substance: AMINO ACIDS\DEXTROSE\ELECTROLYTES NOS\SOYBEAN OIL
     Indication: Parenteral nutrition
     Dosage: (TRIOMEL N9E 2L) AT AN UNSPECIFIED DOSE AND FREQUENCY
     Route: 065
     Dates: start: 20240522
  2. IRON\MINERALS\POTASSIUM IOD\SODIUM FLUORIDE\SODIUM MOLYBDATE\SODIUM SE [Suspect]
     Active Substance: IRON\MINERALS\POTASSIUM IOD\SODIUM FLUORIDE\SODIUM MOLYBDATE\SODIUM SELENITE\ZINC
     Indication: Parenteral nutrition
     Dosage: (NUTRYELT AMPOULE 10 ML) AT AN UNSPECIFIED DOSE AND FREQUENCY
     Route: 065
     Dates: start: 20240522
  3. CERNEVIT [Suspect]
     Active Substance: VITAMINS
     Indication: Parenteral nutrition
     Dosage: (CERNEVIT MULTY VITAMIN 12-5ML) AT AN UNSPECIFIED DOSE AND FREQUENCY
     Route: 065
     Dates: start: 20240522

REACTIONS (2)
  - Hypersensitivity [Unknown]
  - Rash pruritic [Recovered/Resolved]

NARRATIVE: CASE EVENT DATE: 20240522
